FAERS Safety Report 25640781 (Version 1)
Quarter: 2025Q3

REPORT INFORMATION
  Report Type: Spontaneous
  Country: US (occurrence: None)
  Receive Date: 20250802
  Receipt Date: 20250802
  Transmission Date: 20251020
  Serious: Yes (Other)
  Sender: FDA-CTU
  Company Number: None

PATIENT
  Age: 31 Year
  Sex: Female
  Weight: 81 kg

DRUGS (17)
  1. BENZONATATE [Suspect]
     Active Substance: BENZONATATE
     Indication: Sinusitis
     Dosage: OTHER QUANTITY : 1 CAPSULE(S);?FREQUENCY : 3 TIMES A DAY;?
     Route: 048
     Dates: start: 20250801, end: 20250801
  2. DESVENLAFAXINE [Concomitant]
     Active Substance: DESVENLAFAXINE
  3. PULMICORT TURBUHALER [Concomitant]
     Active Substance: BUDESONIDE
  4. ALBUTEROL [Concomitant]
     Active Substance: ALBUTEROL
  5. LYSINE [Concomitant]
     Active Substance: LYSINE
  6. MELATONIN [Concomitant]
     Active Substance: MELATONIN
  7. VITAMINS [Concomitant]
     Active Substance: VITAMINS
  8. glucosamine or cricket protein [Concomitant]
  9. Pine sap [Concomitant]
  10. FISH OIL [Concomitant]
     Active Substance: FISH OIL
  11. Vitamin E1 [Concomitant]
  12. VITAMIN C [Concomitant]
     Active Substance: ASCORBIC ACID
  13. Organic Elderberry tea/honey/lavender [Concomitant]
  14. HERBALS\WITHANIA SOMNIFERA ROOT [Concomitant]
     Active Substance: HERBALS\WITHANIA SOMNIFERA ROOT
  15. mushroom coffee [Concomitant]
  16. polyphenol tea [Concomitant]
  17. caffeinated seltzers [Concomitant]

REACTIONS (9)
  - Swollen tongue [None]
  - Paraesthesia [None]
  - Nonspecific reaction [None]
  - Urticaria [None]
  - Chest discomfort [None]
  - Blood pressure decreased [None]
  - Confusional state [None]
  - Paraesthesia oral [None]
  - Pharyngeal swelling [None]

NARRATIVE: CASE EVENT DATE: 20250802
